FAERS Safety Report 25660172 (Version 1)
Quarter: 2025Q3

REPORT INFORMATION
  Report Type: Spontaneous
  Country: US (occurrence: US)
  Receive Date: 20250808
  Receipt Date: 20250808
  Transmission Date: 20251020
  Serious: Yes (Hospitalization, Other)
  Sender: DR REDDYS
  Company Number: US-DRL-USA-USA/2025/07/011765

PATIENT
  Age: 29 Year
  Sex: Male

DRUGS (4)
  1. DAPTOMYCIN [Suspect]
     Active Substance: DAPTOMYCIN
     Indication: Cardiac valve vegetation
  2. DAPTOMYCIN [Suspect]
     Active Substance: DAPTOMYCIN
     Indication: Staphylococcal bacteraemia
  3. CEFTAROLINE [Concomitant]
     Active Substance: CEFTAROLINE
     Indication: Cardiac valve vegetation
  4. CEFTAROLINE [Concomitant]
     Active Substance: CEFTAROLINE
     Indication: Staphylococcal bacteraemia

REACTIONS (1)
  - Drug ineffective [Unknown]
